FAERS Safety Report 7428442-0 (Version None)
Quarter: 2011Q2

REPORT INFORMATION
  Report Type: 
  Country: None (occurrence: None)
  Receive Date: 20110421
  Receipt Date: 20110407
  Transmission Date: 20111010
  Serious: Yes (Other)
  Sender: FDA-Public Use
  Company Number: PHHY2011VE29876

PATIENT
  Sex: Female

DRUGS (2)
  1. ACLASTA [Suspect]
     Dosage: 5 MG, PER YEAR
     Route: 042
  2. ACLASTA [Suspect]
     Indication: OSTEOPOROSIS
     Dosage: 5MG PER YEAR
     Route: 042
     Dates: start: 20081201

REACTIONS (5)
  - DISCOMFORT [None]
  - OSTEONECROSIS OF JAW [None]
  - INJURY [None]
  - PAIN IN JAW [None]
  - JAW DISORDER [None]
